FAERS Safety Report 8953108 (Version 9)
Quarter: 2013Q1

REPORT INFORMATION
  Report Type: Spontaneous
  Country: US (occurrence: US)
  Receive Date: 20121205
  Receipt Date: 20130111
  Transmission Date: 20140127
  Serious: Yes (Death)
  Sender: FDA-Public Use
  Company Number: US-JNJFOC-20121201580

PATIENT
  Age: 81 Year
  Sex: Male
  Weight: 82 kg

DRUGS (9)
  1. XARELTO [Suspect]
     Indication: CEREBROVASCULAR ACCIDENT PROPHYLAXIS
     Dosage: 12: 38 PM
     Route: 065
     Dates: start: 20120722
  2. XARELTO [Suspect]
     Indication: CEREBROVASCULAR ACCIDENT PROPHYLAXIS
     Dosage: 9:14 AM
     Route: 065
     Dates: end: 20120725
  3. XARELTO [Suspect]
     Indication: ATRIAL FIBRILLATION
     Dosage: 12: 38 PM
     Route: 065
     Dates: start: 20120722
  4. XARELTO [Suspect]
     Indication: ATRIAL FIBRILLATION
     Dosage: 9:14 AM
     Route: 065
     Dates: end: 20120725
  5. ATENOLOL [Concomitant]
     Indication: PRODUCT USED FOR UNKNOWN INDICATION
     Dosage: TIME: 09:14
     Route: 048
     Dates: end: 20120725
  6. LACTULOSE [Concomitant]
     Indication: PRODUCT USED FOR UNKNOWN INDICATION
     Dosage: TIME: 08:14
     Route: 048
     Dates: end: 20120725
  7. PANCREATIC ENZYME [Concomitant]
     Indication: PRODUCT USED FOR UNKNOWN INDICATION
     Dosage: TIME: 13:39??IN UNITS
     Route: 048
     Dates: end: 20120725
  8. ZOLPIDEM [Concomitant]
     Indication: PRODUCT USED FOR UNKNOWN INDICATION
     Dosage: TIME: 21:42
     Route: 048
     Dates: end: 20120724
  9. DILTIAZEM [Concomitant]
     Indication: PRODUCT USED FOR UNKNOWN INDICATION
     Dosage: TIME: 21:42
     Route: 042
     Dates: start: 20120721, end: 20120725

REACTIONS (4)
  - Subdural haematoma [Fatal]
  - Fall [Unknown]
  - Haemorrhage [Recovered/Resolved]
  - Laceration [Unknown]
